FAERS Safety Report 15674127 (Version 1)
Quarter: 2018Q4

REPORT INFORMATION
  Report Type: Spontaneous
  Country: US (occurrence: US)
  Receive Date: 20181130
  Receipt Date: 20181130
  Transmission Date: 20190205
  Serious: No
  Sender: FDA-Public Use
  Company Number: US-ELI_LILLY_AND_COMPANY-US201811013297

PATIENT
  Age: 72 Year
  Sex: Female

DRUGS (2)
  1. FORTEO [Suspect]
     Active Substance: TERIPARATIDE
     Dosage: UNK UNK, UNKNOWN
     Route: 065
  2. FORTEO [Suspect]
     Active Substance: TERIPARATIDE
     Indication: PRODUCT USED FOR UNKNOWN INDICATION
     Dosage: UNK UNK, UNKNOWN
     Route: 065
     Dates: start: 201803

REACTIONS (10)
  - Dysgeusia [Unknown]
  - Lip blister [Unknown]
  - Nausea [Unknown]
  - Malaise [Unknown]
  - Dry mouth [Unknown]
  - Vision blurred [Unknown]
  - Vomiting [Unknown]
  - Weight decreased [Unknown]
  - Feeding disorder [Unknown]
  - Swelling face [Unknown]

NARRATIVE: CASE EVENT DATE: 201803
